FAERS Safety Report 18188081 (Version 1)
Quarter: 2020Q3

REPORT INFORMATION
  Report Type: Spontaneous
  Country: US (occurrence: US)
  Receive Date: 20200824
  Receipt Date: 20200824
  Transmission Date: 20201103
  Serious: No
  Sender: FDA-Public Use
  Company Number: US-ENDO PHARMACEUTICALS INC-2019-111005

PATIENT
  Age: 57 Year
  Sex: Female
  Weight: 57.6 kg

DRUGS (10)
  1. TESTOPEL [Suspect]
     Active Substance: TESTOSTERONE
     Indication: HOT FLUSH
     Dosage: UNK UNKNOWN, UNKNOWN; 2 PELLETS ALTERNATING LEFT AND RIGHT BUTTOCKS
     Route: 065
     Dates: start: 2016
  2. TESTOPEL [Suspect]
     Active Substance: TESTOSTERONE
     Indication: ASTHENIA
     Dosage: UNK UNKNOWN, UNKNOWN; 2 PELLETS ALTERNATING LEFT AND RIGHT BUTTOCKS
     Route: 065
     Dates: start: 2019
  3. HUMIRA [Concomitant]
     Active Substance: ADALIMUMAB
     Indication: PSORIASIS
  4. TESTOPEL [Suspect]
     Active Substance: TESTOSTERONE
     Indication: FEMALE SEXUAL DYSFUNCTION
     Dosage: UNK UNKNOWN, UNKNOWN; 2 PELLETS LEFT BUTTOCKS
     Route: 065
     Dates: start: 201912
  5. MULTIVITAMINS [Concomitant]
     Active Substance: VITAMINS
     Indication: PRODUCT USED FOR UNKNOWN INDICATION
  6. TESTOPEL [Suspect]
     Active Substance: TESTOSTERONE
     Indication: HOT FLUSH
     Dosage: UNK UNKNOWN, UNKNOWN; 2 PELLETS ALTERNATING LEFT AND RIGHT BUTTOCKS
     Route: 065
     Dates: start: 2016
  7. TESTOPEL [Suspect]
     Active Substance: TESTOSTERONE
     Indication: ASTHENIA
     Dosage: UNK UNKNOWN, UNKNOWN; 2 PELLETS ALTERNATING LEFT AND RIGHT BUTTOCKS
     Route: 065
     Dates: start: 2019
  8. VITAMIN C [Concomitant]
     Active Substance: ASCORBIC ACID
     Indication: PRODUCT USED FOR UNKNOWN INDICATION
  9. VALTREX [Concomitant]
     Active Substance: VALACYCLOVIR HYDROCHLORIDE
     Indication: ORAL HERPES
  10. TESTOPEL [Suspect]
     Active Substance: TESTOSTERONE
     Indication: FEMALE SEXUAL DYSFUNCTION
     Dosage: UNK UNKNOWN, UNKNOWN; 2 PELLETS LEFT BUTTOCKS
     Route: 065
     Dates: start: 201912

REACTIONS (4)
  - Off label use [Not Recovered/Not Resolved]
  - Implant site nodule [Not Recovered/Not Resolved]
  - Expulsion of medication [Unknown]
  - Implant site pain [Not Recovered/Not Resolved]

NARRATIVE: CASE EVENT DATE: 2016
